FAERS Safety Report 25674475 (Version 1)
Quarter: 2025Q3

REPORT INFORMATION
  Report Type: Spontaneous
  Country: US (occurrence: US)
  Receive Date: 20250813
  Receipt Date: 20250813
  Transmission Date: 20251020
  Serious: Yes (Hospitalization, Other)
  Sender: SUNOVION
  Company Number: US-SMPA-2025SPA010236

PATIENT
  Age: 71 Year
  Sex: Male

DRUGS (15)
  1. ORGOVYX [Suspect]
     Active Substance: RELUGOLIX
     Indication: Prostate cancer
     Route: 048
     Dates: start: 20230314, end: 20230314
  2. ORGOVYX [Suspect]
     Active Substance: RELUGOLIX
     Route: 048
  3. GEMTESA [Suspect]
     Active Substance: VIBEGRON
     Indication: Product used for unknown indication
     Route: 048
  4. PROTONIX [Concomitant]
     Active Substance: PANTOPRAZOLE SODIUM
  5. OMEGA 3 [Concomitant]
     Active Substance: CAPSAICIN
  6. VITAMINS [Concomitant]
     Active Substance: VITAMINS
  7. ZETIA [Concomitant]
     Active Substance: EZETIMIBE
  8. ASPIRIN [Concomitant]
     Active Substance: ASPIRIN
  9. ZYLOPRIM [Concomitant]
     Active Substance: ALLOPURINOL
  10. APAP [Concomitant]
     Active Substance: ACETAMINOPHEN
  11. CALCIUM [Concomitant]
     Active Substance: CALCIUM
  12. IRON [Concomitant]
     Active Substance: IRON
  13. MOXIFLOXACIN [Concomitant]
     Active Substance: MOXIFLOXACIN
  14. PREDNISOLONE [Concomitant]
     Active Substance: PREDNISOLONE
  15. PROLENSA [Concomitant]
     Active Substance: BROMFENAC SODIUM

REACTIONS (2)
  - Kidney infection [Unknown]
  - Renal stone removal [Unknown]
